FAERS Safety Report 19102110 (Version 2)
Quarter: 2021Q2

REPORT INFORMATION
  Report Type: Spontaneous
  Country: GB (occurrence: GB)
  Receive Date: 20210407
  Receipt Date: 20210430
  Transmission Date: 20210717
  Serious: Yes (Other)
  Sender: FDA-Public Use
  Company Number: GB-PFIZER INC-2021353930

PATIENT
  Age: 40 Year
  Sex: Male

DRUGS (3)
  1. DAUNORUBICIN [Concomitant]
     Active Substance: DAUNORUBICIN
     Indication: ACUTE LYMPHOCYTIC LEUKAEMIA
     Dosage: 60 MG/M2, WEEKLY
     Route: 042
  2. VINCRISTINE SULFATE. [Suspect]
     Active Substance: VINCRISTINE SULFATE
     Indication: ACUTE LYMPHOCYTIC LEUKAEMIA
     Dosage: 2 MG, WEEKLY (RECEIVED FOUR WEEKLY INTRAVENOUS DOSES OF 2 MG (1.4 MG/M2))
     Route: 042
  3. PREDNISOLONE. [Concomitant]
     Active Substance: PREDNISOLONE
     Indication: ACUTE LYMPHOCYTIC LEUKAEMIA
     Dosage: 60 MG/M2, DAILY
     Route: 048

REACTIONS (3)
  - Vocal cord paralysis [Recovered/Resolved]
  - Dysphonia [Recovered/Resolved]
  - Stridor [Recovered/Resolved]
